FAERS Safety Report 19511895 (Version 1)
Quarter: 2021Q3

REPORT INFORMATION
  Report Type: Spontaneous
  Country: US (occurrence: US)
  Receive Date: 20210709
  Receipt Date: 20210709
  Transmission Date: 20211014
  Serious: Yes (Hospitalization)
  Sender: FDA-Public Use
  Company Number: None

PATIENT
  Age: 52 Year
  Sex: Female

DRUGS (9)
  1. MAYZENT [Suspect]
     Active Substance: SIPONIMOD
     Indication: MULTIPLE SCLEROSIS
     Route: 048
     Dates: start: 20200220
  2. GABAPENTIN. [Concomitant]
     Active Substance: GABAPENTIN
  3. VITAMIN D3 [Concomitant]
     Active Substance: CHOLECALCIFEROL
  4. MULTIVITAMIN [Concomitant]
     Active Substance: VITAMINS
  5. OMEGA 3 [Concomitant]
     Active Substance: OMEGA-3 FATTY ACIDS
  6. BIOTIN [Concomitant]
     Active Substance: BIOTIN
  7. LORATIDINE [Concomitant]
     Active Substance: LORATADINE
  8. ASPIRIN. [Concomitant]
     Active Substance: ASPIRIN
  9. CAL?MAG?ZINC [Concomitant]

REACTIONS (1)
  - Developmental hip dysplasia [None]

NARRATIVE: CASE EVENT DATE: 20210401
